FAERS Safety Report 4902106-7 (Version None)
Quarter: 2006Q1

REPORT INFORMATION
  Report Type: 
  Country: None (occurrence: None)
  Receive Date: 20060206
  Receipt Date: 20060127
  Transmission Date: 20060701
  Serious: Yes (Other)
  Sender: FDA-Public Use
  Company Number: US-ABBOTT-06P-163-0323520-00

PATIENT
  Sex: Male
  Weight: 72.64 kg

DRUGS (5)
  1. DEPAKOTE [Suspect]
     Indication: CONVULSION
     Route: 048
     Dates: start: 20040101
  2. ATROTAL [Concomitant]
     Indication: CONVULSION
     Route: 048
     Dates: start: 20010101
  3. PYRIDOXINE HYDROCHLORIDE INJ [Concomitant]
     Indication: VITAMIN SUPPLEMENTATION
     Route: 048
  4. MAGNESIUM [Concomitant]
     Indication: MINERAL SUPPLEMENTATION
     Route: 048
  5. KELATION PROTOCOL [Concomitant]
     Indication: DRUG USE FOR UNKNOWN INDICATION
     Dates: start: 20051001

REACTIONS (3)
  - LEAD URINE INCREASED [None]
  - THINKING ABNORMAL [None]
  - URINE ANALYSIS ABNORMAL [None]
